FAERS Safety Report 14982194 (Version 1)
Quarter: 2018Q2

REPORT INFORMATION
  Report Type: Spontaneous
  Country: US (occurrence: US)
  Receive Date: 20180516
  Receipt Date: 20180516
  Transmission Date: 20180711
  Serious: Yes (Other)
  Sender: FDA-Public Use
  Company Number: None

PATIENT
  Age: 47 Year
  Sex: Female
  Weight: 58.5 kg

DRUGS (13)
  1. METHIMAZOLE. [Concomitant]
     Active Substance: METHIMAZOLE
  2. DHEA [Concomitant]
     Active Substance: PRASTERONE
  3. METHYLATED B12/FOLATE [Concomitant]
  4. FLONASE [Concomitant]
     Active Substance: FLUTICASONE PROPIONATE
  5. METOPROLOL SUCCINATE ER 50 MG [Suspect]
     Active Substance: METOPROLOL SUCCINATE
     Indication: TACHYCARDIA
     Dosage: ?          QUANTITY:1 TABLET(S);?
     Route: 048
     Dates: start: 20180501
  6. PROGESTERONE 20% CREAM [Concomitant]
  7. PREGNENOLONE [Concomitant]
     Active Substance: PREGNENOLONE
  8. MUCINEX [Concomitant]
     Active Substance: GUAIFENESIN
  9. MULTI-MINERAL [Concomitant]
  10. GENERIC ZYRTEC [Concomitant]
     Active Substance: CETIRIZINE HYDROCHLORIDE
  11. MULTI-VITAMIN [Concomitant]
     Active Substance: .ALPHA.-TOCOPHEROL ACETATE, DL-\ASCORBIC ACID\CYANOCOBALAMIN\FLUORIDE ION\FOLIC ACID\NIACIN\PYRIDOXINE\RIBOFLAVIN\THIAMINE\VITAMIN A\VITAMIN D
  12. VITAMIN C [Concomitant]
     Active Substance: ASCORBIC ACID
  13. METHYLATED B COMPLEX [Concomitant]

REACTIONS (2)
  - Nightmare [None]
  - Hallucination, visual [None]

NARRATIVE: CASE EVENT DATE: 20180515
